FAERS Safety Report 6204619-7 (Version None)
Quarter: 2009Q2

REPORT INFORMATION
  Report Type: 
  Country: None (occurrence: None)
  Receive Date: 20090527
  Receipt Date: 20090526
  Transmission Date: 20091009
  Serious: Yes (Other)
  Sender: FDA-Public Use
  Company Number: US-PFIZER INC-2009189484

PATIENT
  Sex: Female
  Weight: 77.098 kg

DRUGS (1)
  1. DETROL LA [Suspect]
     Indication: URINARY INCONTINENCE
     Dates: start: 20051001

REACTIONS (3)
  - DRUG HYPERSENSITIVITY [None]
  - HAEMORRHAGE [None]
  - HYPERSENSITIVITY [None]
